FAERS Safety Report 11599372 (Version 3)
Quarter: 2015Q4

REPORT INFORMATION
  Report Type: Report from Study
  Country: KR (occurrence: KR)
  Receive Date: 20151006
  Receipt Date: 20151228
  Transmission Date: 20160304
  Serious: Yes (Hospitalization)
  Sender: FDA-Public Use
  Company Number: KR-OTSUKA-JP-2014-15230

PATIENT
  Age: 76 Year
  Sex: Male

DRUGS (14)
  1. BLINDED *ASPIRIN [Suspect]
     Active Substance: ASPIRIN
     Indication: CEREBRAL INFARCTION
     Dosage: 250 MG, BID
     Route: 048
     Dates: start: 20120918, end: 201408
  2. BLINDED PROBUCOL [Suspect]
     Active Substance: PROBUCOL
     Indication: CEREBRAL INFARCTION
     Dosage: 250 MG, BID
     Route: 048
     Dates: start: 20120918, end: 201408
  3. MOTILITONE [Concomitant]
     Active Substance: HERBALS
     Indication: CONSTIPATION
     Dosage: UNK
     Route: 065
     Dates: start: 20130117
  4. BLINDED CILOSTAZOL [Suspect]
     Active Substance: CILOSTAZOL
     Indication: TRANSIENT ISCHAEMIC ATTACK
     Dosage: UNK
     Route: 048
     Dates: start: 20120918, end: 20131213
  5. LEVOTENSION [Concomitant]
     Indication: HYPERTENSION
     Dosage: UNK
     Route: 065
     Dates: start: 20121018
  6. BLINDED *ASPIRIN [Suspect]
     Active Substance: ASPIRIN
     Indication: TRANSIENT ISCHAEMIC ATTACK
     Dosage: UNK
     Route: 048
     Dates: start: 20120918, end: 20131213
  7. BLINDED *PLACEBO [Suspect]
     Active Substance: INVESTIGATIONAL PRODUCT
     Indication: TRANSIENT ISCHAEMIC ATTACK
     Dosage: UNK
     Route: 048
     Dates: start: 20120918, end: 20131213
  8. BLINDED PROBUCOL [Suspect]
     Active Substance: PROBUCOL
     Indication: TRANSIENT ISCHAEMIC ATTACK
     Dosage: UNK
     Route: 048
     Dates: start: 20120918, end: 20131213
  9. PROBUCOL [Suspect]
     Active Substance: PROBUCOL
     Indication: CEREBRAL INFARCTION
     Dosage: 250 MG, BID
     Route: 048
     Dates: start: 20120918, end: 20131213
  10. BLINDED *PLACEBO [Suspect]
     Active Substance: INVESTIGATIONAL PRODUCT
     Indication: CEREBRAL INFARCTION
     Dosage: 250 MG, BID
     Route: 048
     Dates: start: 20120918, end: 201408
  11. PROBUCOL [Suspect]
     Active Substance: PROBUCOL
     Indication: TRANSIENT ISCHAEMIC ATTACK
  12. BLINDED CILOSTAZOL [Suspect]
     Active Substance: CILOSTAZOL
     Indication: CEREBRAL INFARCTION
     Dosage: 250 MG, BID
     Route: 048
     Dates: start: 20120918, end: 201408
  13. GLIATILIN [Concomitant]
     Active Substance: CHOLINE ALFOSCERATE
     Indication: COGNITIVE DISORDER
     Dosage: UNK
     Route: 065
     Dates: start: 20120917
  14. CALVAN [Concomitant]
     Indication: HYPERTENSION
     Dosage: UNK
     Route: 065
     Dates: start: 20130419

REACTIONS (2)
  - Asthenia [Recovered/Resolved with Sequelae]
  - Humerus fracture [Recovered/Resolved]

NARRATIVE: CASE EVENT DATE: 20130723
